FAERS Safety Report 8356496-6 (Version None)
Quarter: 2012Q2

REPORT INFORMATION
  Report Type: 
  Country: None (occurrence: None)
  Receive Date: 20120511
  Receipt Date: 20120511
  Transmission Date: 20120825
  Serious: No
  Sender: FDA-Public Use
  Company Number: None

PATIENT
  Age: 42 Year
  Sex: Female

DRUGS (4)
  1. AMPYRA [Suspect]
     Indication: MULTIPLE SCLEROSIS
     Dosage: 10MG Q12H ORALLY
     Route: 048
  2. COPAXONE [Concomitant]
  3. BACLOFEN [Concomitant]
  4. ALBUTEROL [Concomitant]

REACTIONS (5)
  - ABDOMINAL DISCOMFORT [None]
  - SENSATION OF HEAVINESS [None]
  - PAIN [None]
  - AGITATION [None]
  - FATIGUE [None]
